FAERS Safety Report 9261946 (Version 1)
Quarter: 2013Q2

REPORT INFORMATION
  Report Type: Spontaneous
  Country: US (occurrence: US)
  Receive Date: 20130429
  Receipt Date: 20130429
  Transmission Date: 20140414
  Serious: Yes (Hospitalization)
  Sender: FDA-Public Use
  Company Number: US-ALLERGAN-1305513US

PATIENT
  Age: 50 Year
  Sex: Female

DRUGS (3)
  1. BOTOX COSMETIC [Suspect]
     Indication: SKIN WRINKLING
     Dosage: 38 UNITS, SINGLE
     Route: 030
     Dates: start: 20130213, end: 20130213
  2. BOTOX COSMETIC [Suspect]
     Indication: SKIN WRINKLING
  3. AMBIEN [Concomitant]
     Indication: INSOMNIA

REACTIONS (12)
  - Streptococcal infection [Recovered/Resolved]
  - Cellulitis [Recovered/Resolved]
  - Chills [Recovered/Resolved]
  - Impetigo [Recovered/Resolved]
  - Injection site pain [Recovered/Resolved]
  - Swelling face [Recovered/Resolved]
  - Pruritus [Recovered/Resolved]
  - Facial pain [Recovered/Resolved]
  - Eye swelling [Recovered/Resolved]
  - Erythema [Recovered/Resolved]
  - Facial paresis [Recovered/Resolved]
  - Injection site infection [Recovered/Resolved]
